FAERS Safety Report 7739447-4 (Version None)
Quarter: 2011Q3

REPORT INFORMATION
  Report Type: 
  Country: None (occurrence: None)
  Receive Date: 20110909
  Receipt Date: 20110906
  Transmission Date: 20111222
  Serious: Yes (Hospitalization)
  Sender: FDA-Public Use
  Company Number: GB-TEVA-299623ISR

PATIENT
  Age: 78 Year
  Sex: Male
  Weight: 71 kg

DRUGS (1)
  1. TRIMETHOPRIM [Suspect]
     Indication: DEVICE RELATED INFECTION
     Dosage: 400 MILLIGRAM;
     Route: 048
     Dates: start: 20110816, end: 20110823

REACTIONS (1)
  - INTERNATIONAL NORMALISED RATIO INCREASED [None]
